FAERS Safety Report 18905676 (Version 2)
Quarter: 2022Q2

REPORT INFORMATION
  Report Type: Report from Study
  Country: IN (occurrence: IN)
  Receive Date: 20210217
  Receipt Date: 20220525
  Transmission Date: 20220721
  Serious: Yes (Death)
  Sender: FDA-Public Use
  Company Number: IN-NOVARTISPH-NVSC2021IN037849

PATIENT
  Age: 55 Year
  Sex: Female

DRUGS (1)
  1. NEORAL [Suspect]
     Active Substance: CYCLOSPORINE
     Indication: Transplant
     Dosage: 100 MG, BID
     Route: 065
     Dates: start: 20180717

REACTIONS (1)
  - Death [Fatal]

NARRATIVE: CASE EVENT DATE: 20210205
